FAERS Safety Report 6904094-0 (Version None)
Quarter: 2010Q3

REPORT INFORMATION
  Report Type: 
  Country: None (occurrence: None)
  Receive Date: 20100804
  Receipt Date: 20090318
  Transmission Date: 20110219
  Serious: No
  Sender: FDA-Public Use
  Company Number: US-PFIZER INC-2009153147

PATIENT
  Sex: Female

DRUGS (4)
  1. LYRICA [Suspect]
     Indication: NEURALGIA
     Dosage: 50 MG, UNK
     Dates: start: 20050101
  2. VALTREX [Concomitant]
  3. AMOXICILLIN [Concomitant]
  4. NITROFURANTOIN [Concomitant]
     Dosage: 100 MG, 2X/DAY

REACTIONS (1)
  - DRUG INEFFECTIVE [None]
